FAERS Safety Report 18497494 (Version 1)
Quarter: 2020Q4

REPORT INFORMATION
  Report Type: Spontaneous
  Country: US (occurrence: US)
  Receive Date: 20201112
  Receipt Date: 20201112
  Transmission Date: 20210114
  Serious: Yes (Other)
  Sender: FDA-Public Use
  Company Number: US-TEVA-2020-US-1847911

PATIENT
  Sex: Female

DRUGS (1)
  1. MEXILETINE [Suspect]
     Active Substance: MEXILETINE
     Route: 065

REACTIONS (1)
  - Blindness [Unknown]
